FAERS Safety Report 9506191 (Version 1)
Quarter: 2013Q1

REPORT INFORMATION
  Report Type: Spontaneous
  Country: US (occurrence: None)
  Receive Date: 20130304
  Receipt Date: 20130304
  Transmission Date: 20140127
  Serious: Yes (Other)
  Sender: FDA-Public Use
  Company Number: ALA-01742_2011

PATIENT
  Sex: Female

DRUGS (1)
  1. ROWASA [Suspect]
     Indication: COLITIS ULCERATIVE
     Route: 054

REACTIONS (3)
  - Haemorrhage [None]
  - Pyrexia [None]
  - Muscle spasms [None]
